FAERS Safety Report 5914463-3 (Version None)
Quarter: 2008Q4

REPORT INFORMATION
  Report Type: 
  Country: None (occurrence: None)
  Receive Date: 20081007
  Receipt Date: 20080930
  Transmission Date: 20090506
  Serious: Yes (Death, Hospitalization)
  Sender: FDA-Public Use
  Company Number: 2008SP016793

PATIENT
  Age: 59 Year
  Sex: Male
  Weight: 91.6266 kg

DRUGS (4)
  1. PEG-INTRON [Suspect]
     Indication: HEPATITIS C
     Dosage: ; SC
     Route: 058
     Dates: start: 20080311, end: 20080613
  2. REBETOL [Suspect]
     Indication: HEPATITIS C
     Dosage: ; PO
     Route: 048
     Dates: start: 20080311, end: 20080613
  3. LASIX [Concomitant]
  4. ALDACTONE [Concomitant]

REACTIONS (31)
  - ABDOMINAL TENDERNESS [None]
  - AMMONIA INCREASED [None]
  - ASCITES [None]
  - BLOOD GLUCOSE INCREASED [None]
  - CIRCULATORY COLLAPSE [None]
  - COAGULOPATHY [None]
  - CONFUSIONAL STATE [None]
  - ECCHYMOSIS [None]
  - GRANULOCYTOPENIA [None]
  - HAEMATOCRIT DECREASED [None]
  - HAEMODYNAMIC INSTABILITY [None]
  - HAEMOGLOBIN DECREASED [None]
  - HAEMORRHAGIC ANAEMIA [None]
  - HEPATIC FAILURE [None]
  - HYPOALBUMINAEMIA [None]
  - HYPOTENSION [None]
  - HYPOVOLAEMIA [None]
  - HYPOXIA [None]
  - METABOLIC ACIDOSIS [None]
  - MUSCLE INJURY [None]
  - NEUTROPENIA [None]
  - OEDEMA PERIPHERAL [None]
  - PNEUMONIA [None]
  - RENAL FAILURE [None]
  - RESPIRATORY FAILURE [None]
  - RETROPERITONEAL HAEMATOMA [None]
  - RETROPERITONEAL HAEMORRHAGE [None]
  - SHOCK HAEMORRHAGIC [None]
  - SWELLING [None]
  - THROMBOCYTOPENIA [None]
  - VENTRICULAR FAILURE [None]
